FAERS Safety Report 6112167-8 (Version None)
Quarter: 2009Q1

REPORT INFORMATION
  Report Type: 
  Country: None (occurrence: None)
  Receive Date: 20090310
  Receipt Date: 20090226
  Transmission Date: 20090719
  Serious: Yes (Other)
  Sender: FDA-Public Use
  Company Number: WAES 0902USA02082

PATIENT
  Age: 6 Year
  Sex: Male
  Weight: 19.9583 kg

DRUGS (3)
  1. COZAAR [Suspect]
     Indication: MARFAN'S SYNDROME
     Dosage: 8 MG DAILY PO
     Route: 048
     Dates: start: 20090203, end: 20090209
  2. VIGAMOX [Concomitant]
  3. PREDNISOLONE TAB [Concomitant]

REACTIONS (3)
  - DRUG HYPERSENSITIVITY [None]
  - PRURITUS [None]
  - RASH GENERALISED [None]
